FAERS Safety Report 17642114 (Version 4)
Quarter: 2020Q2

REPORT INFORMATION
  Report Type: Spontaneous
  Country: IT (occurrence: IT)
  Receive Date: 20200408
  Receipt Date: 20200514
  Transmission Date: 20200713
  Serious: Yes (Hospitalization, Other)
  Sender: FDA-Public Use
  Company Number: IT-JNJFOC-20200343196

PATIENT
  Sex: Male

DRUGS (2)
  1. RIVAROXABAN [Suspect]
     Active Substance: RIVAROXABAN
     Indication: PRODUCT USED FOR UNKNOWN INDICATION
     Dosage: UNK
     Route: 048
     Dates: start: 20200323, end: 20200323
  2. DIGITALIS [Concomitant]
     Active Substance: DIGITALIS

REACTIONS (2)
  - Pancreatitis necrotising [Recovering/Resolving]
  - Pancreatic cyst [Recovering/Resolving]
